FAERS Safety Report 24928802 (Version 1)
Quarter: 2025Q1

REPORT INFORMATION
  Report Type: Spontaneous
  Country: US (occurrence: US)
  Receive Date: 20250205
  Receipt Date: 20250205
  Transmission Date: 20250408
  Serious: No
  Sender: MYLAN
  Company Number: US-MYLANLABS-2025M1007943

PATIENT
  Age: 81 Year
  Sex: Male
  Weight: 61.23 kg

DRUGS (1)
  1. LEVOTHYROXINE [Suspect]
     Active Substance: LEVOTHYROXINE
     Indication: Thyroid disorder
     Dosage: 75 MICROGRAM, QD (1 TABLET BY MOUTH ONCE A DAY ON AN EMPTY STOMACH)
     Route: 048
     Dates: start: 202410, end: 202501

REACTIONS (2)
  - Throat irritation [Recovering/Resolving]
  - Swelling [Recovering/Resolving]

NARRATIVE: CASE EVENT DATE: 20250101
